FAERS Safety Report 7335805-0 (Version None)
Quarter: 2011Q1

REPORT INFORMATION
  Report Type: 
  Country: None (occurrence: None)
  Receive Date: 20110307
  Receipt Date: 20110225
  Transmission Date: 20110831
  Serious: Yes (Other)
  Sender: FDA-Public Use
  Company Number: JP-ASTELLAS-2011JP001523

PATIENT
  Age: 85 Year
  Sex: Female

DRUGS (3)
  1. SOLUTIONS AFFECTING THE ELECTROLYTE BALANCE [Concomitant]
     Route: 065
  2. ANTIBIOTICS [Concomitant]
     Route: 065
  3. FUNGUARD [Suspect]
     Indication: BLOOD BETA-D-GLUCAN INCREASED
     Route: 065

REACTIONS (1)
  - TRICHOSPORON INFECTION [None]
